FAERS Safety Report 7953066-6 (Version None)
Quarter: 2011Q4

REPORT INFORMATION
  Report Type: 
  Country: None (occurrence: None)
  Receive Date: 20111201
  Receipt Date: 20111125
  Transmission Date: 20120403
  Serious: Yes (Hospitalization, Other)
  Sender: FDA-Public Use
  Company Number: BR-ABBOTT-11P-020-0705629-00

PATIENT
  Sex: Female
  Weight: 50 kg

DRUGS (2)
  1. HUMIRA [Suspect]
     Indication: CROHN'S DISEASE
     Dosage: INDUCTION DOSE: 160MG/80MG, 14 DAYS LATER.
     Dates: start: 20100901
  2. MESIGYNA [Concomitant]
     Indication: CONTRACEPTION
     Route: 030

REACTIONS (18)
  - PRURITUS [None]
  - EYE INFECTION [None]
  - PAIN [None]
  - PUS IN STOOL [None]
  - WEIGHT DECREASED [None]
  - AURICULAR SWELLING [None]
  - GENITAL HERPES [None]
  - ANAL INFECTION [None]
  - ALOPECIA [None]
  - C-REACTIVE PROTEIN ABNORMAL [None]
  - RHEUMATOID ARTHRITIS [None]
  - TOOTH INFECTION [None]
  - HAEMATOCHEZIA [None]
  - VOMITING [None]
  - BONE PAIN [None]
  - EAR INFECTION [None]
  - IMMUNOSUPPRESSION [None]
  - DECREASED APPETITE [None]
